FAERS Safety Report 10409003 (Version 1)
Quarter: 2014Q3

REPORT INFORMATION
  Report Type: Spontaneous
  Country: CH (occurrence: None)
  Receive Date: 20140822
  Receipt Date: 20140822
  Transmission Date: 20150326
  Serious: Yes (Other)
  Sender: FDA-Public Use
  Company Number: ABR_01779_2014

PATIENT
  Age: 28 Year
  Sex: Female

DRUGS (2)
  1. LEVONORGESTREL. [Suspect]
     Active Substance: LEVONORGESTREL
     Indication: CONTRACEPTION
     Route: 048
  2. LAMOTRIGINE. [Suspect]
     Active Substance: LAMOTRIGINE
     Indication: EPILEPSY

REACTIONS (6)
  - Confusional state [None]
  - Disorientation [None]
  - Generalised tonic-clonic seizure [None]
  - Status epilepticus [None]
  - Psychomotor hyperactivity [None]
  - Drug interaction [None]
